FAERS Safety Report 18504363 (Version 1)
Quarter: 2020Q4

REPORT INFORMATION
  Report Type: Report from Study
  Country: None (occurrence: AU)
  Receive Date: 20201113
  Receipt Date: 20201113
  Transmission Date: 20210114
  Serious: Yes (Other)
  Sender: FDA-Public Use
  Company Number: AU-ABBVIE-19S-008-2621840-00

PATIENT
  Age: 60 Year
  Sex: Male

DRUGS (8)
  1. OXYCODONE [Concomitant]
     Active Substance: OXYCODONE
     Indication: PRODUCT USED FOR UNKNOWN INDICATION
  2. DUODOPA [Suspect]
     Active Substance: CARBIDOPA\LEVODOPA
     Indication: PARKINSON^S DISEASE
     Dosage: 100ML GEL CASSETTE?16HR/DAILY
     Route: 050
     Dates: start: 20170824
  3. AMANTADINE. [Concomitant]
     Active Substance: AMANTADINE HYDROCHLORIDE
     Indication: PRODUCT USED FOR UNKNOWN INDICATION
  4. DICLOFENAC [Concomitant]
     Active Substance: DICLOFENAC
     Indication: PRODUCT USED FOR UNKNOWN INDICATION
  5. LIDOCAINE. [Concomitant]
     Active Substance: LIDOCAINE
     Indication: PRODUCT USED FOR UNKNOWN INDICATION
     Dosage: 1% 5 ML AMPOULE?AS NEEDED
     Route: 030
  6. DUODOPA [Suspect]
     Active Substance: CARBIDOPA\LEVODOPA
     Dosage: DUODOPA 4.5 ML/HRS; BOLUS 8 MLS AND 1 ML AS NEEDED?13 HOURS
     Route: 050
  7. OXAZEPAM. [Concomitant]
     Active Substance: OXAZEPAM
     Indication: PRODUCT USED FOR UNKNOWN INDICATION
     Dosage: HALF IN THE MORNING , 1 MID, 1 AT NIGHT
  8. DUODOPA [Suspect]
     Active Substance: CARBIDOPA\LEVODOPA
     Dosage: 13 MLS PER HOURS WITH A BOLUS OF 16 MLS
     Route: 050

REACTIONS (11)
  - Device occlusion [Not Recovered/Not Resolved]
  - Incorrect route of product administration [Recovered/Resolved]
  - Device kink [Unknown]
  - Incorrect route of product administration [Unknown]
  - Cerebellopontine angle tumour [Unknown]
  - Device occlusion [Recovered/Resolved]
  - Incorrect route of product administration [Recovered/Resolved]
  - Dystonia [Not Recovered/Not Resolved]
  - Impaired quality of life [Unknown]
  - Dyskinesia [Not Recovered/Not Resolved]
  - Device occlusion [Recovered/Resolved]

NARRATIVE: CASE EVENT DATE: 201901
